FAERS Safety Report 9711960 (Version 1)
Quarter: 2013Q4

REPORT INFORMATION
  Report Type: Spontaneous
  Country: US (occurrence: None)
  Receive Date: 20131125
  Receipt Date: 20131125
  Transmission Date: 20140711
  Serious: Yes (Disabling)
  Sender: FDA-Public Use
  Company Number: None

PATIENT
  Age: 28 Year
  Sex: Male
  Weight: 72.58 kg

DRUGS (1)
  1. CHANTIX [Suspect]
     Indication: SMOKING CESSATION THERAPY
     Dosage: 1 PILL
     Route: 048
     Dates: start: 20121210, end: 20131016

REACTIONS (14)
  - Aggression [None]
  - Headache [None]
  - Anger [None]
  - Verbal abuse [None]
  - Irritability [None]
  - Apathy [None]
  - Restless legs syndrome [None]
  - Abnormal dreams [None]
  - Suicidal ideation [None]
  - Obsessive thoughts [None]
  - Partner stress [None]
  - Decreased interest [None]
  - Educational problem [None]
  - Personality change [None]
